FAERS Safety Report 14167791 (Version 1)
Quarter: 2017Q4

REPORT INFORMATION
  Report Type: Spontaneous
  Country: US (occurrence: US)
  Receive Date: 20171107
  Receipt Date: 20171107
  Transmission Date: 20180321
  Serious: No
  Sender: FDA-Public Use
  Company Number: US-SA-2017SA083007

PATIENT
  Age: 64 Year
  Sex: Female
  Weight: 108.4 kg

DRUGS (33)
  1. FISH  OIL [Concomitant]
     Active Substance: FISH OIL
  2. TOUJEO [Suspect]
     Active Substance: INSULIN GLARGINE
     Indication: TYPE 2 DIABETES MELLITUS
     Dosage: DOSE:150 UNIT(S)
     Route: 051
     Dates: start: 2015
  3. MAGNESIUM [Concomitant]
     Active Substance: MAGNESIUM
  4. FERROUS SULFATE. [Concomitant]
     Active Substance: FERROUS SULFATE
     Dosage: DOSE: 01 TSP
  5. ALBUTEROL. [Concomitant]
     Active Substance: ALBUTEROL
  6. XALATAN [Concomitant]
     Active Substance: LATANOPROST
  7. VITAMINS NOS [Concomitant]
     Active Substance: VITAMINS
  8. ZOFRAN [Concomitant]
     Active Substance: ONDANSETRON HYDROCHLORIDE
     Indication: NAUSEA
  9. TOUJEO [Suspect]
     Active Substance: INSULIN GLARGINE
     Indication: TYPE 2 DIABETES MELLITUS
     Dosage: DOSE:180 UNIT(S)
     Route: 051
     Dates: start: 201704
  10. LYRICA [Concomitant]
     Active Substance: PREGABALIN
  11. TRICOR [Concomitant]
     Active Substance: FENOFIBRATE
  12. LEVSIN [Concomitant]
     Active Substance: HYOSCYAMINE SULFATE
  13. SINGULAIR [Concomitant]
     Active Substance: MONTELUKAST SODIUM
  14. FLONASE [Concomitant]
     Active Substance: FLUTICASONE PROPIONATE
     Dosage: DOSE: 01 EACH NOSTRIL
     Route: 045
  15. BUMEX [Concomitant]
     Active Substance: BUMETANIDE
  16. SOLOSTAR [Concomitant]
     Active Substance: DEVICE
     Indication: TYPE 2 DIABETES MELLITUS
     Dates: start: 2015
  17. VITAMIN B12 [Concomitant]
     Active Substance: CYANOCOBALAMIN
  18. POTASSIUM CHLORIDE. [Concomitant]
     Active Substance: POTASSIUM CHLORIDE
     Dosage: DOSE: 10 MEQ SR-6
  19. METOPROLOL TARTRATE. [Concomitant]
     Active Substance: METOPROLOL TARTRATE
  20. SPIRIVA [Concomitant]
     Active Substance: TIOTROPIUM BROMIDE MONOHYDRATE
     Dosage: DOSE: 160/4.5- 2  PUFFS  BID
  21. NUCALA [Concomitant]
     Active Substance: MEPOLIZUMAB
     Dosage: DOSE: 01 INJECTION - 01 MONTH
  22. XARELTO [Concomitant]
     Active Substance: RIVAROXABAN
     Dosage: 20 MG/DINNER
  23. METHOCARBAMOL. [Concomitant]
     Active Substance: METHOCARBAMOL
     Dosage: DOSE: 750 MG-1Q4H-PRN
  24. METFORMIN [Concomitant]
     Active Substance: METFORMIN HYDROCHLORIDE
     Dosage: DOSE: 500 MG-4/D
  25. DUONEB [Concomitant]
     Active Substance: ALBUTEROL SULFATE\IPRATROPIUM BROMIDE
     Dosage: DOSE: Q4HRS
  26. HUMALOG [Concomitant]
     Active Substance: INSULIN LISPRO
     Dosage: DOSE: 2-3 TIMES DAILY
  27. ZYRTEC [Concomitant]
     Active Substance: CETIRIZINE HYDROCHLORIDE
  28. IMDUR [Concomitant]
     Active Substance: ISOSORBIDE MONONITRATE
  29. TACLONEX [Concomitant]
     Active Substance: BETAMETHASONE DIPROPIONATE\CALCIPOTRIENE\CALCIPOTRIENE HYDRATE
     Dosage: 0.005-0.0064-PRN
  30. DORZOLAMIDE [Concomitant]
     Active Substance: DORZOLAMIDE
  31. TYLENOL ARTHRITIS PAIN [Concomitant]
     Active Substance: ACETAMINOPHEN
     Dosage: (8HR) 2@HS
  32. VITAMIN C [Concomitant]
     Active Substance: ASCORBIC ACID
  33. NORVASC [Concomitant]
     Active Substance: AMLODIPINE BESYLATE

REACTIONS (2)
  - Intentional product misuse [Unknown]
  - Product use issue [Unknown]
